FAERS Safety Report 5604798-6 (Version None)
Quarter: 2008Q1

REPORT INFORMATION
  Report Type: 
  Country: None (occurrence: None)
  Receive Date: 20080128
  Receipt Date: 20080114
  Transmission Date: 20080703
  Serious: Yes (Other)
  Sender: FDA-Public Use
  Company Number: CA-ROCHE-535943

PATIENT
  Age: 43 Year
  Sex: Male
  Weight: 45.4 kg

DRUGS (8)
  1. PEGASYS [Suspect]
     Indication: HEPATITIS C
     Dosage: PEG-INTERFERON ALFA 2A:SC,180MCG, 180MCG ONCE WKLY,RIBAVIRIN:ORAL,200 MG TAB,1000 MG ONCE A DAY DIS+
     Route: 050
     Dates: start: 20070130, end: 20071015
  2. 1 CONCOMITANT DRUG [Concomitant]
     Dosage: DRUG REPORTED: HIV MEDICATIONS.
     Dates: end: 20071001
  3. CARNITOR [Concomitant]
     Dates: start: 20071001
  4. VITAMINS NOS [Concomitant]
     Route: 048
  5. VIREAD [Concomitant]
     Route: 048
     Dates: end: 20071015
  6. LEXIVA [Concomitant]
     Route: 048
     Dates: end: 20071015
  7. NORVIR [Concomitant]
     Route: 048
     Dates: end: 20071015
  8. VIDEX [Concomitant]
     Route: 048
     Dates: end: 20071015

REACTIONS (12)
  - ANAEMIA [None]
  - BONE PAIN [None]
  - BRONCHOPNEUMONIA [None]
  - CARDIOMEGALY [None]
  - CD4 LYMPHOCYTES DECREASED [None]
  - MITOCHONDRIAL TOXICITY [None]
  - PALPITATIONS [None]
  - PANCREATITIS [None]
  - PNEUMONIA [None]
  - SINUSITIS [None]
  - VISUAL ACUITY REDUCED [None]
  - WHITE BLOOD CELL COUNT DECREASED [None]
